FAERS Safety Report 21261858 (Version 1)
Quarter: 2022Q3

REPORT INFORMATION
  Report Type: Report from Study
  Country: GB (occurrence: GB)
  Receive Date: 20220827
  Receipt Date: 20220827
  Transmission Date: 20221027
  Serious: Yes (Other)
  Sender: FDA-Public Use
  Company Number: GB-NOVARTISPH-NVSC2022GB189347

PATIENT
  Sex: Male

DRUGS (2)
  1. ETANERCEPT [Suspect]
     Active Substance: ETANERCEPT
     Indication: Ankylosing spondylitis
     Dosage: 25 MG, BIW, ERELZI 25MG/0.5ML SOLUTION FOR INJECTION PRE-FILLED SYRINGES (SANDOZ LTD) 4 PRE-FILLED
     Route: 058
  2. ETANERCEPT [Suspect]
     Active Substance: ETANERCEPT
     Dosage: 24 MG, BIW, ERELZI 25MG/0.5ML SOLUTION FOR INJECTION PRE-FILLED SYRINGES (SANDOZ LTD) 4 PRE-FILLED
     Route: 058

REACTIONS (5)
  - Ankylosing spondylitis [Unknown]
  - Pain [Unknown]
  - Product availability issue [Unknown]
  - Incorrect dose administered [Unknown]
  - Inappropriate schedule of product administration [Unknown]
